FAERS Safety Report 7611009-9 (Version None)
Quarter: 2011Q3

REPORT INFORMATION
  Report Type: 
  Country: None (occurrence: None)
  Receive Date: 20110707
  Receipt Date: 20110624
  Transmission Date: 20111222
  Serious: Yes (Hospitalization)
  Sender: FDA-Public Use
  Company Number: TCI2011A03712

PATIENT
  Age: 67 Year
  Sex: Female

DRUGS (6)
  1. VOGLIBOSE [Concomitant]
  2. GLIMICRON (GLICLAZIDE) [Concomitant]
  3. ACTOS [Suspect]
     Indication: HYPERGLYCAEMIA
     Dosage: 15 MG (15 MG,1 D) PER ORAL
     Route: 048
  4. LOSARTAN POTASSIUM [Concomitant]
  5. CRESTOR [Concomitant]
  6. METFORMIN HYDROCHLORIDE [Concomitant]

REACTIONS (2)
  - MALIGNANT URINARY TRACT NEOPLASM [None]
  - BLOOD URINE PRESENT [None]
